FAERS Safety Report 19483810 (Version 1)
Quarter: 2021Q3

REPORT INFORMATION
  Report Type: Spontaneous
  Country: DE (occurrence: DE)
  Receive Date: 20210701
  Receipt Date: 20210701
  Transmission Date: 20211014
  Serious: Yes (Other)
  Sender: FDA-Public Use
  Company Number: DE-ASTRAZENECA-2021A559187

PATIENT
  Age: 67 Year
  Sex: Female

DRUGS (2)
  1. GEFITINIB. [Suspect]
     Active Substance: GEFITINIB
     Indication: NON-SMALL CELL LUNG CANCER
     Route: 048
     Dates: start: 201003, end: 201312
  2. ERLOTINIB [Concomitant]
     Active Substance: ERLOTINIB

REACTIONS (5)
  - Increased bronchial secretion [Unknown]
  - Malignant neoplasm progression [Unknown]
  - Lymphadenopathy mediastinal [Unknown]
  - Rash [Unknown]
  - Alopecia [Unknown]
